FAERS Safety Report 7525543-3 (Version None)
Quarter: 2011Q2

REPORT INFORMATION
  Report Type: 
  Country: None (occurrence: None)
  Receive Date: 20110526
  Receipt Date: 20110513
  Transmission Date: 20111010
  Serious: Yes (Other)
  Sender: FDA-Public Use
  Company Number: 2011MA005884

PATIENT
  Age: 34 Year
  Sex: Female

DRUGS (1)
  1. PROPYLTHIOURACIL TAB [Suspect]

REACTIONS (9)
  - VASCULITIS [None]
  - THROMBOSIS [None]
  - SKIN NECROSIS [None]
  - PROTHROMBIN TIME PROLONGED [None]
  - SKIN LESION [None]
  - ACTIVATED PARTIAL THROMBOPLASTIN TIME PROLONGED [None]
  - SKIN HAEMORRHAGE [None]
  - COAGULOPATHY [None]
  - INFARCTION [None]
